FAERS Safety Report 23678669 (Version 1)
Quarter: 2024Q1

REPORT INFORMATION
  Report Type: Report from Study
  Country: US (occurrence: US)
  Receive Date: 20240327
  Receipt Date: 20240327
  Transmission Date: 20240410
  Serious: Yes (Hospitalization, Other)
  Sender: FDA-Public Use
  Company Number: US-ABBVIE-5449086

PATIENT
  Sex: Male

DRUGS (3)
  1. SKYRIZI [Suspect]
     Active Substance: RISANKIZUMAB-RZAA
     Indication: Crohn^s disease
     Dosage: FIRST INFUSION
     Route: 042
     Dates: start: 20231210
  2. SKYRIZI [Suspect]
     Active Substance: RISANKIZUMAB-RZAA
     Indication: Crohn^s disease
     Dosage: SECOND INFUSION
     Route: 042
  3. SKYRIZI [Suspect]
     Active Substance: RISANKIZUMAB-RZAA
     Indication: Crohn^s disease
     Dosage: THIRD INFUSION
     Route: 042

REACTIONS (7)
  - Cataract [Recovered/Resolved]
  - Sepsis [Recovering/Resolving]
  - Liver disorder [Recovering/Resolving]
  - Rash [Recovered/Resolved]
  - Renal disorder [Recovered/Resolved]
  - Crohn^s disease [Recovered/Resolved]
  - Dizziness [Recovered/Resolved]
